FAERS Safety Report 12437471 (Version 2)
Quarter: 2017Q2

REPORT INFORMATION
  Report Type: Report from Study
  Country: BE (occurrence: BE)
  Receive Date: 20160606
  Receipt Date: 20170418
  Transmission Date: 20170830
  Serious: Yes (Hospitalization, Other)
  Sender: FDA-Public Use
  Company Number: BE-JNJFOC-20160523823

PATIENT
  Sex: Male

DRUGS (2)
  1. PREDNISONE. [Concomitant]
     Active Substance: PREDNISONE
     Indication: PROSTATE CANCER METASTATIC
     Route: 065
  2. ABIRATERONE ACETATE [Suspect]
     Active Substance: ABIRATERONE ACETATE
     Indication: PROSTATE CANCER METASTATIC
     Route: 048

REACTIONS (18)
  - Myocardial infarction [Unknown]
  - Thrombocytopenia [Unknown]
  - Cardiac failure [Unknown]
  - Transaminases increased [Unknown]
  - Myocardial ischaemia [Unknown]
  - Supraventricular tachyarrhythmia [Unknown]
  - Pain [Unknown]
  - Vomiting [Unknown]
  - Hypokalaemia [Unknown]
  - Anaemia [Unknown]
  - Oedema peripheral [Unknown]
  - Hypertension [Unknown]
  - Neutropenia [Unknown]
  - Fatigue [Unknown]
  - Nausea [Unknown]
  - Diarrhoea [Unknown]
  - Ventricular tachyarrhythmia [Unknown]
  - Arrhythmia [Unknown]
